FAERS Safety Report 5470931-2 (Version None)
Quarter: 2007Q3

REPORT INFORMATION
  Report Type: 
  Country: None (occurrence: None)
  Receive Date: 20070928
  Receipt Date: 20070919
  Transmission Date: 20080115
  Serious: Yes (Death, Hospitalization)
  Sender: FDA-Public Use
  Company Number: US-MERCK-0709USA04238

PATIENT
  Age: 27 Year
  Sex: Female

DRUGS (10)
  1. CASPOFUNGIN MSD [Suspect]
     Indication: FUNGAL INFECTION
     Route: 065
  2. CASPOFUNGIN MSD [Suspect]
     Route: 065
  3. CASPOFUNGIN MSD [Suspect]
     Route: 065
  4. CASPOFUNGIN MSD [Suspect]
     Route: 065
  5. VORICONAZOLE [Concomitant]
     Route: 048
  6. VORICONAZOLE [Concomitant]
     Route: 048
  7. VORICONAZOLE [Concomitant]
     Route: 048
  8. VORICONAZOLE [Concomitant]
     Route: 048
  9. VORICONAZOLE [Concomitant]
     Route: 048
  10. VORICONAZOLE [Concomitant]
     Route: 048

REACTIONS (2)
  - ACUTE LYMPHOCYTIC LEUKAEMIA [None]
  - MULTI-ORGAN FAILURE [None]
